FAERS Safety Report 10229673 (Version 1)
Quarter: 2014Q2

REPORT INFORMATION
  Report Type: Spontaneous
  Country: DK (occurrence: DK)
  Receive Date: 20140611
  Receipt Date: 20140611
  Transmission Date: 20141212
  Serious: Yes (Other)
  Sender: FDA-Public Use
  Company Number: DK-BAYER-2014-080037

PATIENT
  Age: 75 Year
  Sex: Female

DRUGS (5)
  1. GADOVIST [Suspect]
     Indication: NUCLEAR MAGNETIC RESONANCE IMAGING
     Dosage: 6.8ML
     Route: 042
     Dates: start: 20110228, end: 20110228
  2. GADOVIST [Suspect]
     Indication: NUCLEAR MAGNETIC RESONANCE IMAGING
     Dosage: 6.3ML
     Route: 042
     Dates: start: 20110915, end: 20110915
  3. GADOVIST [Suspect]
     Indication: NUCLEAR MAGNETIC RESONANCE IMAGING
     Dosage: 6.2ML
     Route: 042
     Dates: start: 20120410, end: 20120410
  4. GADOVIST [Suspect]
     Indication: NUCLEAR MAGNETIC RESONANCE IMAGING
     Dosage: 6.3ML
     Route: 042
     Dates: start: 20121030, end: 20121030
  5. GADOVIST [Suspect]
     Indication: NUCLEAR MAGNETIC RESONANCE IMAGING
     Dosage: 6.3ML
     Route: 042
     Dates: start: 20130626, end: 20130626

REACTIONS (1)
  - Age-related macular degeneration [Unknown]
